FAERS Safety Report 6087592-4 (Version None)
Quarter: 2009Q1

REPORT INFORMATION
  Report Type: 
  Country: None (occurrence: None)
  Receive Date: 20090223
  Receipt Date: 20090212
  Transmission Date: 20090719
  Serious: Yes (Other)
  Sender: FDA-Public Use
  Company Number: US-JNJFOC-20090204109

PATIENT
  Age: 85 Year
  Sex: Male

DRUGS (2)
  1. IMODIUM [Suspect]
  2. IMODIUM [Suspect]
     Indication: DRUG USE FOR UNKNOWN INDICATION

REACTIONS (4)
  - DEHYDRATION [None]
  - EXPIRED DRUG ADMINISTERED [None]
  - FLUID INTAKE REDUCED [None]
  - URINARY RETENTION [None]
